FAERS Safety Report 14850582 (Version 1)
Quarter: 2018Q2

REPORT INFORMATION
  Report Type: Spontaneous
  Country: US (occurrence: US)
  Receive Date: 20180506
  Receipt Date: 20180506
  Transmission Date: 20180711
  Serious: Yes (Hospitalization, Disabling, Other)
  Sender: FDA-Public Use
  Company Number: US-009507513-1110USA02008

PATIENT
  Sex: Male
  Weight: 111.13 kg

DRUGS (5)
  1. ALENDRONATE SODIUM. [Suspect]
     Active Substance: ALENDRONATE SODIUM
     Dosage: 70 MG, QW
     Route: 048
     Dates: start: 20091109, end: 20150527
  2. ALENDRONATE SODIUM. [Suspect]
     Active Substance: ALENDRONATE SODIUM
     Indication: OSTEOPOROSIS
     Dosage: 70 MG, QW
     Route: 048
     Dates: start: 20080304
  3. ALENDRONATE SODIUM. [Suspect]
     Active Substance: ALENDRONATE SODIUM
     Dosage: 70 MG, QW
     Route: 048
     Dates: start: 20151117, end: 20160208
  4. FOSAMAX [Suspect]
     Active Substance: ALENDRONATE SODIUM
     Indication: OSTEOPOROSIS
     Dosage: 70 MG, QW
     Route: 048
     Dates: start: 2004, end: 200712
  5. CORTICOSTEROIDS (UNSPECIFIED) [Concomitant]
     Active Substance: UNSPECIFIED INGREDIENT
     Indication: ASTHMA
     Route: 065
     Dates: start: 1979, end: 2008

REACTIONS (27)
  - Neck injury [Unknown]
  - Back injury [Unknown]
  - Hypertension [Not Recovered/Not Resolved]
  - Musculoskeletal disorder [Not Recovered/Not Resolved]
  - Ligament sprain [Unknown]
  - Blood cholesterol increased [Unknown]
  - Asthma [Unknown]
  - Femur fracture [Unknown]
  - Rheumatoid arthritis [Unknown]
  - Bleeding time prolonged [Unknown]
  - Fall [Unknown]
  - Depression [Unknown]
  - Femur fracture [Unknown]
  - Carpal tunnel syndrome [Unknown]
  - Post-traumatic pain [Unknown]
  - Intervertebral disc calcification [Unknown]
  - Muscle atrophy [Unknown]
  - Gait disturbance [Unknown]
  - Femur fracture [Recovering/Resolving]
  - Intervertebral disc degeneration [Unknown]
  - Fall [Unknown]
  - Joint dislocation [Unknown]
  - Basal cell carcinoma [Unknown]
  - Fracture delayed union [Recovering/Resolving]
  - Gait disturbance [Unknown]
  - Scoliosis [Unknown]
  - Hand fracture [Unknown]

NARRATIVE: CASE EVENT DATE: 20051027
